FAERS Safety Report 13602899 (Version 1)
Quarter: 2017Q2

REPORT INFORMATION
  Report Type: Report from Study
  Country: CR (occurrence: CR)
  Receive Date: 20170601
  Receipt Date: 20170601
  Transmission Date: 20170830
  Serious: Yes (Other)
  Sender: FDA-Public Use
  Company Number: PHHY2017CR079042

PATIENT
  Sex: Female

DRUGS (1)
  1. CO-DIOVAN [Suspect]
     Active Substance: HYDROCHLOROTHIAZIDE\VALSARTAN
     Indication: HYPERTENSION
     Dosage: 1 DF, QD, (HYDROCHLOROTHIAZIDE 25 MG, VALSARTAN 160 MG)
     Route: 048

REACTIONS (4)
  - Diverticulum intestinal haemorrhagic [Unknown]
  - Hypoacusis [Recovered/Resolved]
  - Weight decreased [Unknown]
  - Bone pain [Recovering/Resolving]
